FAERS Safety Report 16973792 (Version 1)
Quarter: 2019Q4

REPORT INFORMATION
  Report Type: Spontaneous
  Country: FR (occurrence: FR)
  Receive Date: 20191030
  Receipt Date: 20191030
  Transmission Date: 20200122
  Serious: Yes (Hospitalization)
  Sender: FDA-Public Use
  Company Number: FR-ACCORD-159200

PATIENT
  Age: 67 Year
  Sex: Male
  Weight: 120 kg

DRUGS (14)
  1. KARDEGIC [Suspect]
     Active Substance: ASPIRIN DL-LYSINE
     Indication: ATRIAL FIBRILLATION
     Dosage: STRENGTH:75 MG,
     Route: 048
     Dates: end: 20180606
  2. FUROSEMIDE. [Concomitant]
     Active Substance: FUROSEMIDE
  3. DESLORATADINE. [Concomitant]
     Active Substance: DESLORATADINE
  4. JANUVIA [Concomitant]
     Active Substance: SITAGLIPTIN PHOSPHATE
  5. SALBUTAMOL [Concomitant]
     Active Substance: ALBUTEROL
  6. PERINDOPRIL [Concomitant]
     Active Substance: PERINDOPRIL
  7. XARELTO [Suspect]
     Active Substance: RIVAROXABAN
     Indication: ATRIAL FIBRILLATION
     Dosage: STRENGTH:20 MG
     Route: 048
     Dates: end: 20180528
  8. BISOPROLOL [Concomitant]
     Active Substance: BISOPROLOL
  9. AMIODARONE [Concomitant]
     Active Substance: AMIODARONE
  10. PROCORALAN [Concomitant]
     Active Substance: IVABRADINE
  11. EZETROL [Suspect]
     Active Substance: EZETIMIBE
     Indication: PRODUCT USED FOR UNKNOWN INDICATION
     Dosage: STRENGTH:10 MG
     Route: 048
     Dates: end: 20180530
  12. ALLOPURINOL. [Suspect]
     Active Substance: ALLOPURINOL
     Indication: PRODUCT USED FOR UNKNOWN INDICATION
     Route: 048
     Dates: end: 20180528
  13. SPIRONOLACTONE. [Concomitant]
     Active Substance: SPIRONOLACTONE
  14. ESOMEPRAZOLE/ESOMEPRAZOLE MAGNESIUM/ESOMEPRAZOLE SODIUM [Suspect]
     Active Substance: ESOMEPRAZOLE
     Indication: PRODUCT USED FOR UNKNOWN INDICATION
     Route: 048
     Dates: end: 20180528

REACTIONS (3)
  - Ischaemic stroke [Recovered/Resolved with Sequelae]
  - Rhabdomyolysis [Recovered/Resolved]
  - Drug ineffective [Unknown]

NARRATIVE: CASE EVENT DATE: 20180528
